FAERS Safety Report 4308022-6 (Version None)
Quarter: 2004Q1

REPORT INFORMATION
  Report Type: 
  Country: None (occurrence: None)
  Receive Date: 20040301
  Receipt Date: 20030321
  Transmission Date: 20041129
  Serious: No
  Sender: FDA-Public Use
  Company Number: US-BRISTOL-MYERS SQUIBB COMPANY-12218251

PATIENT
  Age: 62 Year
  Sex: Female
  Weight: 114 kg

DRUGS (4)
  1. GLUCOPHAGE [Suspect]
  2. AVANDIA [Suspect]
  3. DETROL [Suspect]
  4. MAVIK [Suspect]

REACTIONS (2)
  - MUSCLE CRAMP [None]
  - PAIN IN EXTREMITY [None]
